FAERS Safety Report 20151706 (Version 1)
Quarter: 2021Q4

REPORT INFORMATION
  Report Type: Spontaneous
  Country: US (occurrence: US)
  Receive Date: 20211206
  Receipt Date: 20211206
  Transmission Date: 20220303
  Serious: No
  Sender: FDA-Public Use
  Company Number: US-GW PHARMA-202111USGW05960

PATIENT

DRUGS (1)
  1. EPIDIOLEX [Suspect]
     Active Substance: CANNABIDIOL
     Indication: Epilepsy
     Dosage: 12.45 MG/KG/DAY, 150 MILLIGRAM, BID
     Dates: start: 202008

REACTIONS (2)
  - Weight increased [Unknown]
  - Product use in unapproved indication [Unknown]
